FAERS Safety Report 7491554-X (Version None)
Quarter: 2011Q2

REPORT INFORMATION
  Report Type: 
  Country: None (occurrence: None)
  Receive Date: 20110519
  Receipt Date: 20110513
  Transmission Date: 20111010
  Serious: Yes (Death, Life-Threatening, Hospitalization)
  Sender: FDA-Public Use
  Company Number: GXKR2009DE02937

PATIENT
  Age: 66 Year
  Sex: Female
  Weight: 50 kg

DRUGS (11)
  1. PREDNISOLONE [Suspect]
     Dosage: 7.5 MG, QD
     Route: 048
     Dates: start: 20081118
  2. ENOXAPARIN SODIUM [Concomitant]
     Indication: THROMBOSIS PROPHYLAXIS
     Dosage: 40 MG, QD
     Route: 058
     Dates: start: 20080901, end: 20081201
  3. SODIUM CHLORIDE [Concomitant]
     Indication: HYPONATRAEMIA
     Dosage: 1 DF, TID
     Route: 048
     Dates: start: 20080901, end: 20081201
  4. FOLSAN [Concomitant]
     Indication: HEPATIC CIRRHOSIS
     Dosage: 5 MG, QD
     Route: 048
     Dates: start: 20030101, end: 20081201
  5. PALLADONE [Concomitant]
     Indication: RHEUMATOID ARTHRITIS
     Dosage: UNK
     Route: 048
     Dates: end: 20081201
  6. TORSEMIDE [Concomitant]
     Indication: HYPERTENSION
     Dosage: 10 MG, QD
     Route: 048
     Dates: start: 20000101, end: 20081115
  7. METOCLOPRAMIDE [Concomitant]
     Indication: NAUSEA
     Dosage: 30 GTT, TID
     Route: 048
     Dates: start: 20080901, end: 20081201
  8. BISOPROLOL FUMARATE [Concomitant]
     Indication: HYPERTENSION
     Dosage: 2.5 MG, QD
     Route: 048
     Dates: start: 20000101, end: 20081201
  9. PANTOPRAZOLE [Concomitant]
     Indication: PROPHYLAXIS AGAINST GASTROINTESTINAL ULCER
     Dosage: 40 MG, QD
     Route: 048
     Dates: start: 20080901, end: 20081201
  10. PREDNISOLONE [Suspect]
     Indication: HEPATIC CIRRHOSIS
     Dosage: 10 MG, QD
     Route: 048
     Dates: start: 20080919, end: 20081118
  11. POTASSIUM [Concomitant]
     Indication: HYPOKALAEMIA
     Dosage: 2 CUP, TID
     Route: 048
     Dates: start: 20080901, end: 20081201

REACTIONS (6)
  - ASPERGILLOSIS [None]
  - DELIRIUM [None]
  - PNEUMONIA [None]
  - SEPSIS [None]
  - DISTURBANCE IN ATTENTION [None]
  - PYREXIA [None]
